FAERS Safety Report 13130195 (Version 2)
Quarter: 2017Q2

REPORT INFORMATION
  Report Type: Spontaneous
  Country: AM (occurrence: AM)
  Receive Date: 20170119
  Receipt Date: 20170424
  Transmission Date: 20170830
  Serious: Yes (Death, Hospitalization, Other)
  Sender: FDA-Public Use
  Company Number: AM-JNJFOC-20170113918

PATIENT
  Age: 46 Year
  Sex: Male

DRUGS (20)
  1. BEDAQUILINE [Suspect]
     Active Substance: BEDAQUILINE
     Indication: PULMONARY TUBERCULOSIS
     Route: 048
     Dates: start: 20170302, end: 20170406
  2. AMOXICILLIN/CLAVULANIC ACID [Suspect]
     Active Substance: AMOXICILLIN\CLAVULANIC ACID
     Indication: PULMONARY TUBERCULOSIS
     Dosage: 2000 UNSPECIFIED UNIT
     Route: 065
     Dates: start: 20160824
  3. AMOXICILLIN/CLAVULANIC ACID [Suspect]
     Active Substance: AMOXICILLIN\CLAVULANIC ACID
     Indication: PULMONARY TUBERCULOSIS
     Route: 065
     Dates: start: 20170328, end: 20170406
  4. PARA-AMINOSALICYLIC ACID [Suspect]
     Active Substance: AMINOSALICYLIC ACID
     Indication: PULMONARY TUBERCULOSIS
     Route: 065
     Dates: start: 20161123, end: 20170107
  5. CAPREOMYCIN [Suspect]
     Active Substance: CAPREOMYCIN
     Indication: PULMONARY TUBERCULOSIS
     Dosage: 1000 UNSPECIFIED UNIT
     Route: 065
     Dates: start: 20160824, end: 20160902
  6. CLOFAZIMINE [Suspect]
     Active Substance: CLOFAZIMINE
     Indication: PULMONARY TUBERCULOSIS
     Dosage: 200 UNSPECIFIED UNIT
     Route: 065
     Dates: start: 20160824
  7. PARA-AMINOSALICYLIC ACID [Suspect]
     Active Substance: AMINOSALICYLIC ACID
     Indication: PULMONARY TUBERCULOSIS
     Dosage: 8000 UNSPECIFIED UNIT
     Route: 065
     Dates: start: 20160824
  8. CYCLOSERINE. [Suspect]
     Active Substance: CYCLOSERINE
     Indication: PULMONARY TUBERCULOSIS
     Dosage: 750 UNSPECIFIED UNIT
     Route: 065
     Dates: start: 20161123, end: 20170107
  9. BEDAQUILINE [Suspect]
     Active Substance: BEDAQUILINE
     Indication: PULMONARY TUBERCULOSIS
     Route: 048
     Dates: start: 20161123, end: 20170107
  10. CLOFAZIMINE [Suspect]
     Active Substance: CLOFAZIMINE
     Indication: PULMONARY TUBERCULOSIS
     Route: 065
     Dates: start: 20170302, end: 20170406
  11. AMOXICILLIN/CLAVULANIC ACID [Suspect]
     Active Substance: AMOXICILLIN\CLAVULANIC ACID
     Indication: PULMONARY TUBERCULOSIS
     Route: 065
     Dates: start: 20161123, end: 20170107
  12. INSULIN [Concomitant]
     Active Substance: INSULIN NOS
     Route: 065
  13. CLOFAZIMINE [Suspect]
     Active Substance: CLOFAZIMINE
     Indication: PULMONARY TUBERCULOSIS
     Dosage: 100 UNSPECIFIED UNIT
     Route: 065
     Dates: start: 20161123, end: 20170107
  14. BEDAQUILINE [Suspect]
     Active Substance: BEDAQUILINE
     Indication: PULMONARY TUBERCULOSIS
     Route: 048
     Dates: start: 20160824
  15. LINEZOLID. [Suspect]
     Active Substance: LINEZOLID
     Indication: PULMONARY TUBERCULOSIS
     Dosage: 600 UNSPECIFIED UNIT
     Route: 065
     Dates: start: 20160824, end: 20161020
  16. IMIPENEM [Suspect]
     Active Substance: IMIPENEM
     Indication: PULMONARY TUBERCULOSIS
     Route: 065
     Dates: start: 20161123, end: 20170107
  17. IMIPENEM [Suspect]
     Active Substance: IMIPENEM
     Indication: PULMONARY TUBERCULOSIS
     Route: 065
     Dates: start: 20170328, end: 20170406
  18. IMIPENEM [Suspect]
     Active Substance: IMIPENEM
     Indication: PULMONARY TUBERCULOSIS
     Dosage: 2000 UNSPECIFIED UNIT
     Route: 065
     Dates: start: 20160824
  19. DELAMANID [Suspect]
     Active Substance: DELAMANID
     Indication: PULMONARY TUBERCULOSIS
     Dosage: DOSE: 200 (UNITS UNSPECIFIED)
     Route: 065
     Dates: start: 20170302, end: 20170406
  20. VITAMIN B6 [Concomitant]
     Active Substance: PYRIDOXINE HYDROCHLORIDE
     Dosage: 200 MG X 1
     Route: 065

REACTIONS (3)
  - Hip fracture [Unknown]
  - Ischaemic stroke [Not Recovered/Not Resolved]
  - Myocardial infarction [Fatal]

NARRATIVE: CASE EVENT DATE: 20170107
